FAERS Safety Report 6134167-4 (Version None)
Quarter: 2009Q1

REPORT INFORMATION
  Report Type: 
  Country: None (occurrence: None)
  Receive Date: 20090326
  Receipt Date: 20081103
  Transmission Date: 20090719
  Serious: No
  Sender: FDA-Public Use
  Company Number: US-AMGEN-US316988

PATIENT
  Sex: Male

DRUGS (2)
  1. NPLATE [Suspect]
     Indication: IDIOPATHIC THROMBOCYTOPENIC PURPURA
     Route: 065
     Dates: start: 20081006
  2. PREDNISONE [Concomitant]
     Route: 065
     Dates: start: 20081006

REACTIONS (2)
  - ABDOMINAL DISTENSION [None]
  - SWELLING FACE [None]
